FAERS Safety Report 18711575 (Version 1)
Quarter: 2021Q1

REPORT INFORMATION
  Report Type: Spontaneous
  Country: US (occurrence: US)
  Receive Date: 20210106
  Receipt Date: 20210106
  Transmission Date: 20210419
  Serious: Yes (Hospitalization, Disabling)
  Sender: FDA-Public Use
  Company Number: None

PATIENT
  Age: 76 Year
  Sex: Male
  Weight: 132.75 kg

DRUGS (13)
  1. FLUTICASONE. [Concomitant]
     Active Substance: FLUTICASONE
  2. TOPIRAMATE. [Concomitant]
     Active Substance: TOPIRAMATE
  3. ZOLPIDEM [Concomitant]
     Active Substance: ZOLPIDEM TARTRATE
  4. SUDAFED [Concomitant]
     Active Substance: PSEUDOEPHEDRINE HYDROCHLORIDE
  5. CLARITIN [Concomitant]
     Active Substance: LORATADINE
  6. OMEPRAZOLE. [Concomitant]
     Active Substance: OMEPRAZOLE
  7. METOPROLOL TART [Concomitant]
     Active Substance: METOPROLOL TARTRATE
  8. CENTRUM SILVER [Concomitant]
     Active Substance: MINERALS\VITAMINS
  9. METOPROLOL ER SUCCINATE [Concomitant]
     Active Substance: METOPROLOL SUCCINATE
  10. NIFEDIPINE. [Concomitant]
     Active Substance: NIFEDIPINE
  11. TORSEMIDE 10MG [Suspect]
     Active Substance: TORSEMIDE
     Indication: PERIPHERAL SWELLING
     Dosage: ?          QUANTITY:1 TABLET(S);?
     Route: 048
     Dates: start: 20200826, end: 20201009
  12. ALKA?SELTZER [Concomitant]
     Active Substance: ANHYDROUS CITRIC ACID\ASPIRIN\SODIUM BICARBONATE
  13. EDARBI [Concomitant]
     Active Substance: AZILSARTAN KAMEDOXOMIL

REACTIONS (8)
  - Headache [None]
  - Cerebrovascular accident [None]
  - Diplopia [None]
  - Aneurysm [None]
  - Diabetes mellitus [None]
  - Myasthenia gravis [None]
  - Neoplasm [None]
  - Strabismus [None]

NARRATIVE: CASE EVENT DATE: 20201009
